FAERS Safety Report 14619841 (Version 1)
Quarter: 2018Q1

REPORT INFORMATION
  Report Type: Spontaneous
  Country: US (occurrence: US)
  Receive Date: 20180309
  Receipt Date: 20180309
  Transmission Date: 20180509
  Serious: Yes (Death)
  Sender: FDA-Public Use
  Company Number: PHEH2018US009317

PATIENT
  Age: 12 Year
  Sex: Female
  Weight: 30 kg

DRUGS (1)
  1. PROMACTA [Suspect]
     Active Substance: ELTROMBOPAG OLAMINE
     Indication: IMMUNE THROMBOCYTOPENIC PURPURA
     Dosage: 50 OT, QD
     Route: 065
     Dates: start: 20180221

REACTIONS (1)
  - Death [Fatal]

NARRATIVE: CASE EVENT DATE: 20180307
